FAERS Safety Report 6586673-6 (Version None)
Quarter: 2010Q1

REPORT INFORMATION
  Report Type: 
  Country: None (occurrence: None)
  Receive Date: 20100217
  Receipt Date: 20090722
  Transmission Date: 20100710
  Serious: No
  Sender: FDA-Public Use
  Company Number: US-ALLERGAN-0908117US

PATIENT
  Age: 56 Year
  Sex: Female

DRUGS (3)
  1. BOTOX COSMETIC [Suspect]
     Indication: SKIN WRINKLING
     Dosage: 25 UNITS, SINGLE
     Route: 030
     Dates: start: 20090520, end: 20090520
  2. BOTOX COSMETIC [Suspect]
     Dosage: UNK, SINGLE
     Route: 030
     Dates: start: 20090508, end: 20090508
  3. BONIVA [Concomitant]
     Indication: BONE DENSITY DECREASED

REACTIONS (3)
  - DIPLOPIA [None]
  - EXTRAOCULAR MUSCLE PARESIS [None]
  - VISION BLURRED [None]
